FAERS Safety Report 23515526 (Version 3)
Quarter: 2024Q2

REPORT INFORMATION
  Report Type: Report from Study
  Country: US (occurrence: US)
  Receive Date: 20240213
  Receipt Date: 20240402
  Transmission Date: 20240717
  Serious: Yes (Hospitalization, Other)
  Sender: FDA-Public Use
  Company Number: US-HORIZON THERAPEUTICS-HZN-2024-001412

PATIENT

DRUGS (2)
  1. TEPEZZA [Suspect]
     Active Substance: TEPROTUMUMAB-TRBW
     Indication: Endocrine ophthalmopathy
     Dosage: FIRST INFUSION
     Route: 042
     Dates: start: 20231103
  2. TEPEZZA [Suspect]
     Active Substance: TEPROTUMUMAB-TRBW
     Dosage: 6TH INFUSION
     Route: 042
     Dates: start: 20240208

REACTIONS (12)
  - Seizure [Recovering/Resolving]
  - Hypertensive emergency [Not Recovered/Not Resolved]
  - Chest discomfort [Recovered/Resolved]
  - Diabetes mellitus [Unknown]
  - Tongue injury [Unknown]
  - Eye irritation [Unknown]
  - Diplopia [Unknown]
  - Eye pruritus [Unknown]
  - Eye pain [Unknown]
  - Eyelid oedema [Unknown]
  - Conjunctival hyperaemia [Unknown]
  - Dacryocystitis [Unknown]

NARRATIVE: CASE EVENT DATE: 20240101
